FAERS Safety Report 16774841 (Version 1)
Quarter: 2019Q3

REPORT INFORMATION
  Report Type: Spontaneous
  Country: GB (occurrence: GB)
  Receive Date: 20190905
  Receipt Date: 20190905
  Transmission Date: 20191005
  Serious: Yes (Other)
  Sender: FDA-Public Use
  Company Number: GB-ADVANZ PHARMA-201909000130

PATIENT

DRUGS (3)
  1. PREDNISOLONE. [Suspect]
     Active Substance: PREDNISOLONE
     Dosage: 30MG REDUCING 5MG WEEKLY TO A FINAL WEEKLY DOSE OF 5MGUNK
     Route: 048
     Dates: start: 20190601
  2. LANSOPRAZOLE. [Concomitant]
     Active Substance: LANSOPRAZOLE
  3. PREDNISOLONE. [Suspect]
     Active Substance: PREDNISOLONE
     Indication: ECZEMA
     Dosage: 30MG REDUCING 5MG WEEKLY TO A FINAL WEEKLY DOSE OF 5MG
     Route: 048
     Dates: end: 20190711

REACTIONS (5)
  - Dyspepsia [Recovered/Resolved with Sequelae]
  - Mood swings [Recovered/Resolved with Sequelae]
  - Palpitations [Recovered/Resolved with Sequelae]
  - Vision blurred [Recovered/Resolved with Sequelae]
  - Insomnia [Recovered/Resolved with Sequelae]

NARRATIVE: CASE EVENT DATE: 20190601
